FAERS Safety Report 11861543 (Version 1)
Quarter: 2015Q4

REPORT INFORMATION
  Report Type: Report from Study
  Country: IN (occurrence: IN)
  Receive Date: 20151222
  Receipt Date: 20151222
  Transmission Date: 20160305
  Serious: Yes (Other)
  Sender: FDA-Public Use
  Company Number: IN-MYLANLABS-2015M1044620

PATIENT

DRUGS (1)
  1. MAGNESIUM [Suspect]
     Active Substance: MAGNESIUM
     Indication: ECLAMPSIA
     Dosage: UNK

REACTIONS (4)
  - Exposure during pregnancy [Recovered/Resolved]
  - Toxicity to various agents [Unknown]
  - Seizure [Unknown]
  - Respiratory failure [Unknown]
